FAERS Safety Report 6481220-1 (Version None)
Quarter: 2009Q4

REPORT INFORMATION
  Report Type: 
  Country: None (occurrence: None)
  Receive Date: 20091208
  Receipt Date: 20090312
  Transmission Date: 20100525
  Serious: No
  Sender: FDA-Public Use
  Company Number: US-AMGEN-KDL338282

PATIENT
  Sex: Female

DRUGS (2)
  1. ENBREL [Suspect]
     Indication: POLYARTHRITIS
     Route: 058
     Dates: start: 20090305
  2. METHOTREXATE [Concomitant]
     Route: 048
     Dates: start: 20090305

REACTIONS (4)
  - CHILLS [None]
  - DECREASED APPETITE [None]
  - HEADACHE [None]
  - NAUSEA [None]
